FAERS Safety Report 16003818 (Version 1)
Quarter: 2019Q1

REPORT INFORMATION
  Report Type: Spontaneous
  Country: GB (occurrence: GB)
  Receive Date: 20190226
  Receipt Date: 20190226
  Transmission Date: 20190418
  Serious: Yes (Hospitalization)
  Sender: FDA-Public Use
  Company Number: GB-ACCORD-108334

PATIENT
  Age: 49 Year

DRUGS (7)
  1. SALBUTAMOL [Concomitant]
     Active Substance: ALBUTEROL
     Indication: DYSPNOEA
     Dosage: 100 METERED DOSE INHALER.?FOUR TIMES DAILY.
  2. BRALTUS [Concomitant]
     Active Substance: TIOTROPIUM BROMIDE
     Dosage: WITH ZONDA INHALER
     Route: 055
  3. PROPRANOLOL [Concomitant]
     Active Substance: PROPRANOLOL HYDROCHLORIDE
  4. RAMIPRIL. [Suspect]
     Active Substance: RAMIPRIL
     Indication: PRODUCT USED FOR UNKNOWN INDICATION
  5. SERTRALINE [Concomitant]
     Active Substance: SERTRALINE HYDROCHLORIDE
  6. PENTASA [Concomitant]
     Active Substance: MESALAMINE
  7. FOSTAIR [Concomitant]
     Active Substance: BECLOMETHASONE\FORMOTEROL
     Dosage: 100/ 6MCG  INHALER
     Route: 055

REACTIONS (3)
  - Abdominal pain [Unknown]
  - Hepatitis [Unknown]
  - Cholecystitis acute [Recovered/Resolved]
